FAERS Safety Report 5448023-8 (Version None)
Quarter: 2007Q3

REPORT INFORMATION
  Report Type: 
  Country: None (occurrence: None)
  Receive Date: 20070910
  Receipt Date: 20070829
  Transmission Date: 20080115
  Serious: Yes (Other)
  Sender: FDA-Public Use
  Company Number: US-PFIZER INC-2007073142

PATIENT
  Sex: Female
  Weight: 79.4 kg

DRUGS (3)
  1. XALATAN [Suspect]
     Indication: GLAUCOMA
     Route: 031
     Dates: start: 20070725, end: 20070828
  2. GLUCOTROL XL [Concomitant]
  3. GLUCOPHAGE [Concomitant]

REACTIONS (1)
  - EYE HAEMORRHAGE [None]
